FAERS Safety Report 10702237 (Version 2)
Quarter: 2015Q1

REPORT INFORMATION
  Report Type: Spontaneous
  Country: US (occurrence: US)
  Receive Date: 20150109
  Receipt Date: 20150109
  Transmission Date: 20150721
  Serious: No
  Sender: FDA-Public Use
  Company Number: US-CELGENEUS-USA-2014113135

PATIENT
  Age: 42 Year
  Sex: Female
  Weight: 72.64 kg

DRUGS (4)
  1. CITALOPRAM [Concomitant]
     Active Substance: CITALOPRAM HYDROBROMIDE
     Indication: PRODUCT USED FOR UNKNOWN INDICATION
     Route: 065
  2. AMLODIPINE [Concomitant]
     Active Substance: AMLODIPINE BESYLATE
     Indication: PRODUCT USED FOR UNKNOWN INDICATION
     Route: 065
  3. OTEZLA [Suspect]
     Active Substance: APREMILAST
     Indication: PSORIATIC ARTHROPATHY
     Route: 048
     Dates: start: 20141105
  4. OTEZLA [Suspect]
     Active Substance: APREMILAST
     Dosage: 20-30MG
     Route: 048
     Dates: start: 20141106

REACTIONS (5)
  - Dizziness [Unknown]
  - Fungal infection [Unknown]
  - Skin disorder [Unknown]
  - Headache [Unknown]
  - Immune system disorder [Unknown]

NARRATIVE: CASE EVENT DATE: 20141106
